FAERS Safety Report 8347665-X (Version None)
Quarter: 2012Q2

REPORT INFORMATION
  Report Type: 
  Country: None (occurrence: None)
  Receive Date: 20120507
  Receipt Date: 20120419
  Transmission Date: 20120825
  Serious: Yes (Hospitalization)
  Sender: FDA-Public Use
  Company Number: DSA_56269_2012

PATIENT
  Age: 91 Year
  Sex: Female

DRUGS (8)
  1. ENALAPRIL MALEATE [Suspect]
     Indication: HYPERTENSION
     Dosage: 10 MG QD ORAL, DF
     Route: 048
     Dates: start: 20110101, end: 20120406
  2. COUMADIN [Suspect]
     Indication: ATRIAL FIBRILLATION
     Dosage: 5 MG QD ORAL, DF ORAL
     Route: 048
     Dates: start: 20110101, end: 20120406
  3. PRILOSEC [Concomitant]
  4. LASIX [Suspect]
     Indication: HYPERTENSION
     Dosage: 125 MG QD, ORAL, DF ORAL
     Route: 048
     Dates: start: 20050101, end: 20120406
  5. METOCLOPRAMIDE HYDROCHLORIDE [Concomitant]
  6. ALLOPURINOL [Concomitant]
  7. LASIX [Suspect]
     Indication: HYPERTENSION
     Dosage: 50 MG QD ORAL, DF ORAL
     Route: 048
     Dates: start: 20050101, end: 20120406
  8. CITALOPRAM-RATIOPHARM [Concomitant]

REACTIONS (4)
  - INTERNATIONAL NORMALISED RATIO INCREASED [None]
  - RENAL FAILURE ACUTE [None]
  - HYPERKALAEMIA [None]
  - HYPOCOAGULABLE STATE [None]
